FAERS Safety Report 4497680-1 (Version None)
Quarter: 2004Q4

REPORT INFORMATION
  Report Type: 
  Country: None (occurrence: None)
  Receive Date: 20041108
  Receipt Date: 20041022
  Transmission Date: 20050328
  Serious: Yes (Other)
  Sender: FDA-Public Use
  Company Number: US-JNJFOC-20041007237

PATIENT
  Sex: Female

DRUGS (1)
  1. DURAGESIC [Suspect]
     Route: 049

REACTIONS (1)
  - INTENTIONAL MISUSE [None]
